FAERS Safety Report 4330719-2 (Version None)
Quarter: 2004Q2

REPORT INFORMATION
  Report Type: 
  Country: None (occurrence: None)
  Receive Date: 20040401
  Receipt Date: 20040401
  Transmission Date: 20050107
  Serious: Yes (Hospitalization)
  Sender: FDA-Public Use
  Company Number: None

PATIENT
  Age: 72 Year
  Sex: Male

DRUGS (2)
  1. VERAPAMIL [Suspect]
     Dosage: 240 MG QD
     Dates: start: 20040327
  2. TIMOPTIC [Suspect]
     Dosage: 0.5 DAILY
     Dates: start: 20040327

REACTIONS (2)
  - ATRIOVENTRICULAR BLOCK COMPLETE [None]
  - HYPERKALAEMIA [None]
